FAERS Safety Report 6018436-4 (Version None)
Quarter: 2008Q4

REPORT INFORMATION
  Report Type: 
  Country: None (occurrence: None)
  Receive Date: 20081223
  Receipt Date: 20081212
  Transmission Date: 20090506
  Serious: Yes (Other)
  Sender: FDA-Public Use
  Company Number: US-PFIZER INC-2008097438

PATIENT
  Sex: Male
  Weight: 90.909 kg

DRUGS (18)
  1. DETROL LA [Suspect]
     Dates: start: 20081112
  2. AVODART [Concomitant]
  3. TAMSULOSIN HYDROCHLORIDE [Concomitant]
  4. OMEPRAZOLE [Concomitant]
  5. ACTOS [Concomitant]
  6. GLIPIZIDE [Concomitant]
  7. LISINOPRIL [Concomitant]
  8. CARVEDILOL [Concomitant]
  9. CELEBREX [Concomitant]
     Indication: ARTHRITIS
  10. PLAVIX [Concomitant]
  11. TEMAZEPAM [Concomitant]
  12. ACETYLSALICYLIC ACID [Concomitant]
  13. SITAGLIPTIN [Concomitant]
  14. FIBERALL [Concomitant]
  15. GARLIC [Concomitant]
  16. CENTRUM A TO ZINC [Concomitant]
  17. INSULIN [Concomitant]
  18. GABAPENTIN [Concomitant]

REACTIONS (2)
  - POLLAKIURIA [None]
  - URINE OUTPUT DECREASED [None]
